FAERS Safety Report 18417702 (Version 1)
Quarter: 2020Q4

REPORT INFORMATION
  Report Type: Spontaneous
  Country: US (occurrence: US)
  Receive Date: 20201023
  Receipt Date: 20201023
  Transmission Date: 20210114
  Serious: Yes (Other)
  Sender: FDA-Public Use
  Company Number: US-SA-2020SA296011

PATIENT

DRUGS (1)
  1. ZANTAC [Suspect]
     Active Substance: RANITIDINE HYDROCHLORIDE

REACTIONS (4)
  - Gastrointestinal carcinoma [Unknown]
  - Pancreatic carcinoma [Unknown]
  - Oesophageal carcinoma [Unknown]
  - Gastric cancer [Unknown]

NARRATIVE: CASE EVENT DATE: 201202
